FAERS Safety Report 24985556 (Version 1)
Quarter: 2025Q1

REPORT INFORMATION
  Report Type: Report from Study
  Country: KR (occurrence: KR)
  Receive Date: 20250219
  Receipt Date: 20250219
  Transmission Date: 20250408
  Serious: Yes (Death, Other)
  Sender: TAKEDA
  Company Number: KR-TAKEDA-2025TUS017650

PATIENT
  Age: 69 Year
  Sex: Male

DRUGS (1)
  1. BRIGATINIB [Suspect]
     Active Substance: BRIGATINIB
     Indication: Non-small cell lung cancer
     Dosage: 180 MILLIGRAM, QD
     Dates: start: 20240101, end: 20250218

REACTIONS (1)
  - Death [Fatal]

NARRATIVE: CASE EVENT DATE: 20250218
